FAERS Safety Report 9306889 (Version 2)
Quarter: 2013Q2

REPORT INFORMATION
  Report Type: Spontaneous
  Country: DE (occurrence: DE)
  Receive Date: 20130523
  Receipt Date: 20130613
  Transmission Date: 20140414
  Serious: Yes (Hospitalization, Other)
  Sender: FDA-Public Use
  Company Number: GXKR2013DE001889

PATIENT
  Sex: Male
  Weight: 87 kg

DRUGS (1)
  1. OMEP [Suspect]
     Dosage: 20 MG, UNK
     Route: 048

REACTIONS (4)
  - Hepatotoxicity [Recovering/Resolving]
  - Chromaturia [Recovering/Resolving]
  - Yellow skin [Recovering/Resolving]
  - Liver function test abnormal [Recovering/Resolving]
